FAERS Safety Report 11078253 (Version 1)
Quarter: 2015Q2

REPORT INFORMATION
  Report Type: Spontaneous
  Country: CA (occurrence: CA)
  Receive Date: 20150430
  Receipt Date: 20150430
  Transmission Date: 20150821
  Serious: Yes (Hospitalization, Disabling, Other)
  Sender: FDA-Public Use
  Company Number: CA-ROCHE-1568751

PATIENT
  Age: 49 Year
  Sex: Female

DRUGS (7)
  1. PEGFILGRASTIM [Concomitant]
     Active Substance: PEGFILGRASTIM
     Indication: PROPHYLAXIS
     Dosage: FOR 2 CYCLES
     Route: 058
     Dates: start: 20131130, end: 20131222
  2. DOCETAXEL. [Concomitant]
     Active Substance: DOCETAXEL
     Indication: BREAST CANCER
     Dosage: FOR 4 CYCLES
     Route: 042
     Dates: start: 20131017, end: 20131219
  3. CYCLOPHOSPHAMIDE. [Concomitant]
     Active Substance: CYCLOPHOSPHAMIDE
     Indication: BREAST CANCER
     Dosage: FOR 4 CYCLES
     Route: 042
     Dates: start: 20131017, end: 20131219
  4. HERCEPTIN [Suspect]
     Active Substance: TRASTUZUMAB
     Indication: HER-2 POSITIVE BREAST CANCER
     Dosage: (FOR 1 YEAR)
     Route: 042
     Dates: start: 20131017, end: 20141008
  5. HERCEPTIN [Suspect]
     Active Substance: TRASTUZUMAB
     Indication: BREAST CANCER
  6. DEXAMETHASONE. [Concomitant]
     Active Substance: DEXAMETHASONE
     Dosage: BID X 6 DOSES; THEN 4 MG BID*2 DAYS*4 CYCLES Q3WKS
     Route: 048
     Dates: start: 20131016, end: 20131222
  7. CIPROFLOXACIN. [Concomitant]
     Active Substance: CIPROFLOXACIN
     Indication: PROPHYLAXIS
     Dosage: BID X 7 DAYS EVERY 3 WEEKS STARTING DAY 5
     Route: 065
     Dates: start: 20131021

REACTIONS (12)
  - Asthenia [Unknown]
  - Quality of life decreased [Unknown]
  - Heart rate increased [Unknown]
  - Muscle spasms [Not Recovered/Not Resolved]
  - Dyspnoea [Unknown]
  - Heart rate irregular [Unknown]
  - Rash papular [Unknown]
  - Muscle atrophy [Not Recovered/Not Resolved]
  - Febrile neutropenia [Unknown]
  - Pain [Not Recovered/Not Resolved]
  - Bone pain [Not Recovered/Not Resolved]
  - Fatigue [Not Recovered/Not Resolved]

NARRATIVE: CASE EVENT DATE: 20131022
